FAERS Safety Report 9963037 (Version 3)
Quarter: 2014Q2

REPORT INFORMATION
  Report Type: Spontaneous
  Country: US (occurrence: US)
  Receive Date: 20140305
  Receipt Date: 20140603
  Transmission Date: 20141212
  Serious: Yes (Hospitalization, Other)
  Sender: FDA-Public Use
  Company Number: US-BAXTER-2014BAX010495

PATIENT
  Age: 55 Year
  Sex: Female

DRUGS (2)
  1. DIANEAL LOW CALCIUM [Suspect]
     Indication: PERITONEAL DIALYSIS
     Route: 033
     Dates: start: 20130703
  2. DIANEAL LOW CALCIUM [Suspect]
     Indication: PERITONEAL DIALYSIS
     Route: 033
     Dates: start: 20130703

REACTIONS (4)
  - Cerebrovascular accident [Recovering/Resolving]
  - Cognitive disorder [Recovering/Resolving]
  - Myocardial infarction [Recovering/Resolving]
  - Urinary tract infection [Recovering/Resolving]
